FAERS Safety Report 16806810 (Version 1)
Quarter: 2019Q3

REPORT INFORMATION
  Report Type: Spontaneous
  Country: IL (occurrence: IL)
  Receive Date: 20190913
  Receipt Date: 20190913
  Transmission Date: 20191005
  Serious: Yes (Death, Hospitalization)
  Sender: FDA-Public Use
  Company Number: IL-AMNEAL PHARMACEUTICALS-2019-AMRX-01859

PATIENT

DRUGS (1)
  1. MORPHINE SULFATE EXTENDED-RELEASE [Suspect]
     Active Substance: MORPHINE SULFATE
     Indication: CARDIAC FAILURE ACUTE
     Dosage: MEAN DOSE 5 +/- 4 MG
     Route: 065

REACTIONS (1)
  - Adverse event [Fatal]
